FAERS Safety Report 7386761-0 (Version None)
Quarter: 2011Q1

REPORT INFORMATION
  Report Type: 
  Country: None (occurrence: None)
  Receive Date: 20110331
  Receipt Date: 20110325
  Transmission Date: 20110831
  Serious: Yes (Death, Life-Threatening)
  Sender: FDA-Public Use
  Company Number: RU-B.I. PHARMACEUTICALS,INC./RIDGEFIELD-2011-AP-00167SI

PATIENT
  Age: 59 Year
  Sex: Female

DRUGS (7)
  1. DABIGATRAN [Suspect]
     Indication: THROMBOSIS PROPHYLAXIS
     Dosage: 220 MG
     Route: 048
     Dates: start: 20110308, end: 20110311
  2. KETOROL [Concomitant]
     Indication: PAIN
  3. DIMEDROL [Concomitant]
     Indication: ANTIINFLAMMATORY THERAPY
     Dosage: DAILY DOSE: 1.0
     Route: 030
     Dates: start: 20110305, end: 20110308
  4. DIPYRONE INJ [Concomitant]
     Indication: PAIN
     Dosage: DAILY DOSE: 2.0
     Route: 030
     Dates: start: 20110305, end: 20110308
  5. FRAXIPARIN [Concomitant]
     Indication: THROMBOSIS PROPHYLAXIS
     Dosage: 0.6 NR
     Route: 058
     Dates: start: 20110304, end: 20110308
  6. KETOROL [Concomitant]
     Indication: ANTIINFLAMMATORY THERAPY
     Dosage: DAILY DOSE: 1.0
     Route: 030
     Dates: start: 20110305, end: 20110307
  7. CEFTRIAXONE [Concomitant]
     Indication: INFECTION PROPHYLAXIS
     Dosage: DAILY DOSE: 2.0
     Route: 030
     Dates: start: 20110304, end: 20110310

REACTIONS (3)
  - DEEP VEIN THROMBOSIS [None]
  - DRUG INEFFECTIVE [None]
  - PULMONARY EMBOLISM [None]
